FAERS Safety Report 24768141 (Version 1)
Quarter: 2024Q4

REPORT INFORMATION
  Report Type: Spontaneous
  Country: US (occurrence: US)
  Receive Date: 20241223
  Receipt Date: 20241223
  Transmission Date: 20250115
  Serious: Yes (Hospitalization, Disabling)
  Sender: CALIFORNIA DEPARTMENT OF PUBLIC HEALTH
  Company Number: US-California Department of Public Health-2167673

PATIENT
  Age: 8 Month
  Sex: Female
  Weight: 5 kg

DRUGS (1)
  1. BABYBIG [Suspect]
     Active Substance: HUMAN BOTULINUM NEUROTOXIN A/B IMMUNE GLOBULIN
     Indication: Botulism
     Dates: start: 20240830, end: 20240830

REACTIONS (1)
  - Cerebrovascular accident [Unknown]

NARRATIVE: CASE EVENT DATE: 20241207
